FAERS Safety Report 11499585 (Version 1)
Quarter: 2015Q3

REPORT INFORMATION
  Report Type: Report from Study
  Country: US (occurrence: US)
  Receive Date: 20150914
  Receipt Date: 20150914
  Transmission Date: 20151125
  Serious: No
  Sender: FDA-Public Use
  Company Number: US-AMGEN-USASP2015092631

PATIENT
  Age: 69 Year
  Sex: Male

DRUGS (1)
  1. ENBREL [Suspect]
     Active Substance: ETANERCEPT
     Indication: ANKYLOSING SPONDYLITIS
     Dosage: UNK UNK, QWK
     Route: 065

REACTIONS (7)
  - Sleep disorder [Unknown]
  - Finger deformity [Unknown]
  - Pain [Unknown]
  - Spinal deformity [Unknown]
  - Spinal pain [Unknown]
  - Condition aggravated [Unknown]
  - Movement disorder [Unknown]
